FAERS Safety Report 9643022 (Version 1)
Quarter: 2013Q4

REPORT INFORMATION
  Report Type: Spontaneous
  Country: US (occurrence: US)
  Receive Date: 20131024
  Receipt Date: 20131024
  Transmission Date: 20140711
  Serious: Yes (Other)
  Sender: FDA-Public Use
  Company Number: US-JNJFOC-20131010898

PATIENT
  Sex: Male

DRUGS (2)
  1. HALDOL [Suspect]
     Indication: PRODUCT USED FOR UNKNOWN INDICATION
     Route: 048
     Dates: end: 2004
  2. DILANTIN [Concomitant]
     Indication: CONVULSION
     Route: 065

REACTIONS (7)
  - Brain neoplasm [Recovered/Resolved]
  - Convulsion [Not Recovered/Not Resolved]
  - Epilepsy [Not Recovered/Not Resolved]
  - Adverse event [Unknown]
  - Malaise [Not Recovered/Not Resolved]
  - Feeling abnormal [Not Recovered/Not Resolved]
  - Social problem [Not Recovered/Not Resolved]
